FAERS Safety Report 9467034 (Version 4)
Quarter: 2014Q3

REPORT INFORMATION
  Report Type: Spontaneous
  Country: US (occurrence: US)
  Receive Date: 20130820
  Receipt Date: 20140716
  Transmission Date: 20150326
  Serious: Yes (Hospitalization)
  Sender: FDA-Public Use
  Company Number: US-GLAXOSMITHKLINE-A1038291A

PATIENT
  Age: 49 Year
  Sex: Female

DRUGS (2)
  1. ADCIRCA [Concomitant]
     Active Substance: TADALAFIL
  2. FLOLAN [Suspect]
     Active Substance: EPOPROSTENOL SODIUM
     Indication: PULMONARY ARTERIAL HYPERTENSION
     Dosage: 9NGKM CONTINUOUS
     Route: 042
     Dates: start: 20130813

REACTIONS (8)
  - Injection site vesicles [Not Recovered/Not Resolved]
  - Mammogram [Unknown]
  - Investigation [Unknown]
  - Dyspnoea [Unknown]
  - Dyspnoea exertional [Unknown]
  - Localised oedema [Unknown]
  - Oedema peripheral [Unknown]
  - Pain in jaw [Unknown]
